FAERS Safety Report 5141517-4 (Version None)
Quarter: 2006Q4

REPORT INFORMATION
  Report Type: 
  Country: None (occurrence: None)
  Receive Date: 20061101
  Receipt Date: 20060717
  Transmission Date: 20070319
  Serious: Yes (Other)
  Sender: FDA-Public Use
  Company Number: DE-ELI_LILLY_AND_COMPANY-DE200607003463

PATIENT
  Age: 9 Year
  Sex: Male
  Weight: 46 kg

DRUGS (3)
  1. STRATTERA [Suspect]
     Indication: ATTENTION DEFICIT/HYPERACTIVITY DISORDER
     Dosage: UNK, UNK
     Route: 048
     Dates: start: 20051024, end: 20060207
  2. STRATTERA [Suspect]
     Dosage: 60 MG, DAILY (1/D)
     Route: 048
     Dates: end: 20060207
  3. RITALIN [Concomitant]
     Dosage: 35 MG, DAILY (1/D)
     Route: 048
     Dates: end: 20060207

REACTIONS (1)
  - SUPRAVENTRICULAR EXTRASYSTOLES [None]
